FAERS Safety Report 18026904 (Version 1)
Quarter: 2020Q3

REPORT INFORMATION
  Report Type: Spontaneous
  Country: IL (occurrence: IL)
  Receive Date: 20200716
  Receipt Date: 20200716
  Transmission Date: 20201103
  Serious: Yes (Other)
  Sender: FDA-Public Use
  Company Number: IL-TEVA-2020-IL-1799787

PATIENT
  Age: 5 Decade
  Sex: Male

DRUGS (6)
  1. DULOXETINE. [Suspect]
     Active Substance: DULOXETINE
     Indication: FIBROMYALGIA
     Route: 065
  2. TRAMADOL. [Suspect]
     Active Substance: TRAMADOL
     Indication: FIBROMYALGIA
     Route: 065
  3. MEDICAL CANNABIS [Suspect]
     Active Substance: CANNABIS SATIVA SUBSP. INDICA TOP
     Dosage: FORMULATION: OIL
     Route: 065
     Dates: start: 2018
  4. MEDICAL CANNABIS [Suspect]
     Active Substance: CANNABIS SATIVA SUBSP. INDICA TOP
     Indication: FIBROMYALGIA
     Dosage: VIA SMOKING
     Route: 055
     Dates: start: 201712
  5. MEDICAL CANNABIS [Suspect]
     Active Substance: CANNABIS SATIVA SUBSP. INDICA TOP
     Dosage: VIA EVAPORATION
     Route: 055
     Dates: start: 2018
  6. DIPYRONE [Suspect]
     Active Substance: DIPYRONE
     Indication: FIBROMYALGIA
     Route: 065

REACTIONS (2)
  - Urinary retention [Unknown]
  - Sarcoidosis [Recovering/Resolving]
